FAERS Safety Report 12964755 (Version 1)
Quarter: 2016Q4

REPORT INFORMATION
  Report Type: Spontaneous
  Country: BE (occurrence: BE)
  Receive Date: 20161122
  Receipt Date: 20161122
  Transmission Date: 20170207
  Serious: Yes (Other)
  Sender: FDA-Public Use
  Company Number: BE-JNJFOC-20161115487

PATIENT
  Age: 58 Year
  Sex: Female
  Weight: 108 kg

DRUGS (6)
  1. VASEXTEN [Concomitant]
     Active Substance: BARNIDIPINE HYDROCHLORIDE
     Dosage: IN THE EVENING
     Route: 065
     Dates: start: 2008
  2. STELARA [Suspect]
     Active Substance: USTEKINUMAB
     Indication: PRODUCT USED FOR UNKNOWN INDICATION
     Route: 058
     Dates: start: 20150409, end: 20160119
  3. MOXONIDINE [Concomitant]
     Active Substance: MOXONIDINE
     Dosage: IN THE EVENING
     Route: 065
     Dates: start: 2008
  4. OLMETEC [Concomitant]
     Active Substance: OLMESARTAN MEDOXOMIL
     Dosage: IN THE MORNING
     Route: 065
     Dates: start: 2008
  5. STELARA [Suspect]
     Active Substance: USTEKINUMAB
     Indication: PRODUCT USED FOR UNKNOWN INDICATION
     Route: 058
     Dates: start: 20160616
  6. ASAFLOW [Concomitant]
     Active Substance: ASPIRIN
     Dosage: IN THE MORNING
     Route: 065
     Dates: start: 2008

REACTIONS (1)
  - Breast cancer in situ [Unknown]

NARRATIVE: CASE EVENT DATE: 201603
